FAERS Safety Report 6851297-X (Version None)
Quarter: 2010Q3

REPORT INFORMATION
  Report Type: 
  Country: None (occurrence: None)
  Receive Date: 20100717
  Receipt Date: 20080114
  Transmission Date: 20110219
  Serious: No
  Sender: FDA-Public Use
  Company Number: US-PFIZER INC-2008004858

PATIENT
  Sex: Female
  Weight: 79.5 kg

DRUGS (5)
  1. CHANTIX [Suspect]
     Indication: SMOKING CESSATION THERAPY
     Dates: start: 20070101, end: 20071201
  2. CELEXA [Concomitant]
  3. MULTI-VITAMINS [Concomitant]
  4. ACETYLSALICYLIC ACID [Concomitant]
  5. CALCIUM [Concomitant]

REACTIONS (1)
  - ABDOMINAL PAIN UPPER [None]
